FAERS Safety Report 4281231-0 (Version None)
Quarter: 2004Q1

REPORT INFORMATION
  Report Type: 
  Country: None (occurrence: None)
  Receive Date: 20040129
  Receipt Date: 20040122
  Transmission Date: 20041129
  Serious: Yes (Other)
  Sender: FDA-Public Use
  Company Number: WAES 0401GBR00187

PATIENT
  Age: 69 Year
  Sex: Female
  Weight: 68 kg

DRUGS (6)
  1. COSYNTROPIN [Concomitant]
     Dates: start: 20021211
  2. DIAZEPAM [Concomitant]
     Dates: start: 20021023
  3. DOMPERIDONE [Concomitant]
     Dates: start: 20021127
  4. MELOXICAM [Concomitant]
     Dates: start: 20021018, end: 20021217
  5. ZOCOR [Suspect]
     Indication: HYPERLIPIDAEMIA
     Route: 048
     Dates: start: 20001124, end: 20021217
  6. TRIMETHOPRIM [Concomitant]
     Dates: end: 20021127

REACTIONS (1)
  - HYPERKALAEMIA [None]
